FAERS Safety Report 15544702 (Version 1)
Quarter: 2018Q4

REPORT INFORMATION
  Report Type: Spontaneous
  Country: US (occurrence: US)
  Receive Date: 20181024
  Receipt Date: 20181024
  Transmission Date: 20190205
  Serious: No
  Sender: FDA-Public Use
  Company Number: US-ASTRAZENECA-2018SF24704

PATIENT
  Sex: Male

DRUGS (1)
  1. PULMICORT FLEXHALER [Suspect]
     Active Substance: BUDESONIDE
     Route: 055

REACTIONS (7)
  - Asthma [Unknown]
  - Intentional device misuse [Unknown]
  - Wheezing [Unknown]
  - Device defective [Unknown]
  - Drug ineffective [Unknown]
  - Malaise [Unknown]
  - Nasopharyngitis [Unknown]
